FAERS Safety Report 9437359 (Version 2)
Quarter: 2013Q3

REPORT INFORMATION
  Report Type: Spontaneous
  Country: DE (occurrence: JP)
  Receive Date: 20130802
  Receipt Date: 20130820
  Transmission Date: 20140515
  Serious: Yes (Hospitalization)
  Sender: FDA-Public Use
  Company Number: JP-FRI-1000047437

PATIENT
  Age: 83 Year
  Sex: Male

DRUGS (9)
  1. MEMANTINE [Suspect]
     Indication: DEMENTIA ALZHEIMER^S TYPE
     Dosage: 5 MG
     Route: 048
     Dates: start: 20130619, end: 20130628
  2. MEMANTINE [Suspect]
     Dosage: 10 MG
     Route: 048
     Dates: start: 20130628, end: 20130712
  3. MEMANTINE [Suspect]
     Indication: DEMENTIA ALZHEIMER^S TYPE
     Dosage: 35 MG
     Route: 048
     Dates: start: 20130712, end: 20130719
  4. AMLODIPINE OD [Concomitant]
     Dosage: 2.5 MG
     Route: 048
  5. ROZEREM [Concomitant]
     Indication: INSOMNIA
     Dosage: 8 MG
     Route: 048
     Dates: start: 20130212
  6. RESLIN [Concomitant]
     Indication: INSOMNIA
     Dosage: 25 MG, AT BED TIME 50 MG
     Route: 048
     Dates: start: 20130212
  7. MICARDIS [Concomitant]
     Dosage: 20 MG
     Route: 048
  8. TAKEPRON [Concomitant]
     Dosage: 15 MG
     Route: 048
  9. HARNAL D [Concomitant]
     Dosage: 0.2 MG
     Route: 048

REACTIONS (4)
  - Renal failure [Unknown]
  - Accidental overdose [Unknown]
  - Sedation [Unknown]
  - Decreased appetite [Unknown]
